FAERS Safety Report 5065327-1 (Version None)
Quarter: 2006Q3

REPORT INFORMATION
  Report Type: 
  Country: None (occurrence: None)
  Receive Date: 20060731
  Receipt Date: 20060726
  Transmission Date: 20061208
  Serious: Yes (Hospitalization)
  Sender: FDA-Public Use
  Company Number: US-JNJFOC-20060603447

PATIENT
  Age: 89 Year
  Sex: Female
  Weight: 68.2 kg

DRUGS (23)
  1. ULTRAM [Suspect]
     Indication: DRUG USE FOR UNKNOWN INDICATION
     Route: 048
  2. ACETAMINOPHEN [Suspect]
     Indication: DRUG USE FOR UNKNOWN INDICATION
  3. PEPCID [Suspect]
     Indication: DRUG USE FOR UNKNOWN INDICATION
  4. REMERON [Suspect]
     Indication: DEPRESSION
  5. EFFEXOR XR [Suspect]
     Indication: DEPRESSION
  6. ADVAIR DISKUS 100/50 [Suspect]
     Indication: DRUG USE FOR UNKNOWN INDICATION
  7. DOCUSATE SODIUM [Suspect]
     Indication: DRUG USE FOR UNKNOWN INDICATION
  8. ASPIRIN [Suspect]
     Indication: DRUG USE FOR UNKNOWN INDICATION
  9. LOVENOX [Suspect]
     Indication: DRUG USE FOR UNKNOWN INDICATION
  10. PREDNISONE [Suspect]
     Indication: DRUG USE FOR UNKNOWN INDICATION
  11. ANCEF [Suspect]
     Indication: DRUG USE FOR UNKNOWN INDICATION
  12. TRAZODONE HCL [Suspect]
     Indication: DRUG USE FOR UNKNOWN INDICATION
  13. LASIX [Suspect]
     Indication: DRUG USE FOR UNKNOWN INDICATION
  14. ALDACTONE [Suspect]
     Indication: DRUG USE FOR UNKNOWN INDICATION
  15. KEFLEX [Suspect]
     Indication: DRUG USE FOR UNKNOWN INDICATION
  16. SLO MAG [Suspect]
     Indication: DRUG USE FOR UNKNOWN INDICATION
  17. PRO-BANTHINE [Suspect]
     Indication: DRUG USE FOR UNKNOWN INDICATION
  18. COREG [Suspect]
     Indication: DRUG USE FOR UNKNOWN INDICATION
  19. BEXTRA [Suspect]
     Indication: DRUG USE FOR UNKNOWN INDICATION
  20. COZAAR [Suspect]
     Indication: DRUG USE FOR UNKNOWN INDICATION
  21. NORVASC [Suspect]
     Indication: DRUG USE FOR UNKNOWN INDICATION
  22. DARVOCET [Suspect]
     Indication: DRUG USE FOR UNKNOWN INDICATION
  23. DUONEB [Suspect]
     Indication: DRUG USE FOR UNKNOWN INDICATION

REACTIONS (1)
  - HYPONATRAEMIA [None]
